FAERS Safety Report 18821841 (Version 1)
Quarter: 2021Q1

REPORT INFORMATION
  Report Type: Spontaneous
  Country: US (occurrence: US)
  Receive Date: 20210202
  Receipt Date: 20210202
  Transmission Date: 20210419
  Serious: Yes (Other)
  Sender: FDA-Public Use
  Company Number: US-PACIRA-2021000060

PATIENT
  Age: 61 Year
  Sex: Female

DRUGS (12)
  1. EXPAREL [Suspect]
     Active Substance: BUPIVACAINE
     Indication: POSTOPERATIVE ANALGESIA
     Dosage: 266 MG, 20 CC
     Route: 065
  2. FENTANYL. [Concomitant]
     Active Substance: FENTANYL
     Indication: PREOPERATIVE CARE
     Dosage: 50 MCG PRE?OP, 75 MCG PERI?OP
     Route: 065
  3. OXYCONTIN 10MG [Concomitant]
     Indication: POSTOPERATIVE CARE
     Dosage: 10 MG PRE?OP
     Route: 065
  4. VERSED [Concomitant]
     Active Substance: MIDAZOLAM HYDROCHLORIDE
     Indication: PREOPERATIVE CARE
     Dosage: 2 MG PRE?OP
     Route: 065
  5. GABAPENTIN. [Concomitant]
     Active Substance: GABAPENTIN
     Indication: POSTOPERATIVE CARE
     Dosage: BID FOR 2 WEEKS
     Route: 065
  6. MOBIC [Concomitant]
     Active Substance: MELOXICAM
     Indication: POSTOPERATIVE CARE
     Dosage: 7.5 MG
     Route: 065
  7. VANCOMYCIN [Concomitant]
     Active Substance: VANCOMYCIN
     Indication: PREOPERATIVE CARE
     Dosage: 1 G PRE?OP
     Route: 042
  8. PHENERGAN [Concomitant]
     Active Substance: PROMETHAZINE HYDROCHLORIDE
     Indication: POSTOPERATIVE CARE
     Dosage: 300 MG
     Route: 065
  9. PERCOCET 5MG [Concomitant]
     Indication: POSTOPERATIVE CARE
     Dosage: 5 MG X 2
     Route: 065
  10. ANCEF [Concomitant]
     Active Substance: CEFAZOLIN SODIUM
     Indication: PREOPERATIVE CARE
     Dosage: 1 G PRE?OP
     Route: 042
  11. ENTERIC COATED ASA [Concomitant]
     Active Substance: ASPIRIN
     Indication: POSTOPERATIVE CARE
     Dosage: 325 MG
     Route: 065
  12. TRAMADOL. [Concomitant]
     Active Substance: TRAMADOL
     Indication: POSTOPERATIVE CARE
     Dosage: 50MG Q6H OR AS NEEDED
     Route: 065

REACTIONS (1)
  - Manipulation [Unknown]
